FAERS Safety Report 4730018-0 (Version None)
Quarter: 2005Q3

REPORT INFORMATION
  Report Type: 
  Country: None (occurrence: None)
  Receive Date: 20050801
  Receipt Date: 20050615
  Transmission Date: 20060218
  Serious: Yes (Hospitalization)
  Sender: FDA-Public Use
  Company Number: DEWYE745515JUN05

PATIENT
  Sex: Female

DRUGS (4)
  1. ENBREL [Suspect]
     Indication: POLYARTHRITIS
     Dosage: CUMULATIVE DOSE 125MG
     Dates: start: 20041215, end: 20050101
  2. CALCIUM CARBONATE [Concomitant]
  3. L-THYROXIN [Concomitant]
  4. COLECALCIFEROL [Concomitant]

REACTIONS (1)
  - DERMATITIS ALLERGIC [None]
